FAERS Safety Report 20466679 (Version 1)
Quarter: 2022Q1

REPORT INFORMATION
  Report Type: Spontaneous
  Country: US (occurrence: US)
  Receive Date: 20220213
  Receipt Date: 20220213
  Transmission Date: 20220423
  Serious: No
  Sender: FDA-Public Use
  Company Number: US-Horizon-2021HZN00177

PATIENT
  Sex: Female

DRUGS (1)
  1. ACTIMMUNE [Suspect]
     Active Substance: INTERFERON GAMMA-1B
     Indication: Disseminated coccidioidomycosis
     Dosage: 33.5 MCG, 3 TIMES WEEKLY
     Route: 058
     Dates: start: 20210102

REACTIONS (1)
  - Off label use [Not Recovered/Not Resolved]
